FAERS Safety Report 7587235 (Version 19)
Quarter: 2014Q3

REPORT INFORMATION
  Report Type: Report from Study
  Country: FR (occurrence: FR)
  Receive Date: 20100915
  Receipt Date: 20140819
  Transmission Date: 20150326
  Serious: Yes (Hospitalization, Other)
  Sender: FDA-Public Use
  Company Number: FR-ROCHE-725577

PATIENT
  Age: 9 Year
  Sex: Male
  Weight: 32.45 kg

DRUGS (22)
  1. NEURONTIN [Concomitant]
     Active Substance: GABAPENTIN
     Dosage: 20 MG X 3
     Route: 065
     Dates: start: 20100903, end: 20101004
  2. IFOSFAMIDE. [Suspect]
     Active Substance: IFOSFAMIDE
     Dosage: 4TH CURE, LAST DOSE PRIOR TO SAE: 4 NOV 2010.
     Route: 042
  3. VINCRISTINE [Suspect]
     Active Substance: VINCRISTINE
     Indication: SARCOMA
     Dosage: FORM: 1.5 MG/M2
     Route: 042
     Dates: start: 20100828, end: 20100903
  4. FENTANYL. [Concomitant]
     Active Substance: FENTANYL
     Route: 065
     Dates: start: 20100902, end: 20100930
  5. BEVACIZUMAB [Suspect]
     Active Substance: BEVACIZUMAB
     Indication: SARCOMA
     Dosage: FORM:7.5 MG/KG, TEMPORARILY INTERRPUTED
     Route: 042
     Dates: start: 20100828, end: 20101124
  6. ACTINOMYCIN D [Suspect]
     Active Substance: DACTINOMYCIN
     Dosage: 4TH CURE, LAST DOSE PRIOR TO SAE: 03 NOV 2010.
     Route: 042
  7. RIVOTRIL [Concomitant]
     Active Substance: CLONAZEPAM
     Route: 065
  8. IFOSFAMIDE. [Suspect]
     Active Substance: IFOSFAMIDE
     Indication: SARCOMA
     Dosage: FORM:6 G/M2,
     Route: 042
  9. BACTRIM [Concomitant]
     Active Substance: SULFAMETHOXAZOLE\TRIMETHOPRIM
     Dosage: REPORTED AS 800MGX3/W
     Route: 065
  10. ZOPHREN [Concomitant]
     Active Substance: ONDANSETRON
     Dosage: REPORTED AS 8MG*2/D
     Route: 065
     Dates: start: 20100828, end: 20100902
  11. PLITICAN [Concomitant]
     Active Substance: ALIZAPRIDE HYDROCHLORIDE
     Route: 065
     Dates: start: 20100828, end: 20100902
  12. SPASFON (FRANCE) [Concomitant]
     Active Substance: PHLOROGLUCINOL
     Dosage: DOSE:1-2AMP/D
     Route: 065
  13. OMEPRAZOLE. [Concomitant]
     Active Substance: OMEPRAZOLE
     Route: 065
     Dates: start: 20100928, end: 20101005
  14. ACTINOMYCIN D [Suspect]
     Active Substance: DACTINOMYCIN
     Indication: SARCOMA
     Dosage: FORM:1.5 MG/M2,
     Route: 042
  15. MUTESA [Concomitant]
     Route: 065
  16. DOXORUBICIN [Suspect]
     Active Substance: DOXORUBICIN
     Indication: SARCOMA
     Dosage: FORM:60 MG/M2
     Route: 042
     Dates: start: 20100828
  17. PERFALGAN [Concomitant]
     Active Substance: ACETAMINOPHEN
     Dosage: REPORTED AS 500MG*4/D
     Route: 065
  18. DOLOSAL [Concomitant]
     Route: 065
     Dates: start: 20101110, end: 20101116
  19. VANCOMYCIN [Concomitant]
     Active Substance: VANCOMYCIN
     Route: 065
     Dates: start: 20101114, end: 20101118
  20. NEUPOGEN [Concomitant]
     Active Substance: FILGRASTIM
     Route: 065
     Dates: start: 20101116, end: 20101117
  21. BEVACIZUMAB [Suspect]
     Active Substance: BEVACIZUMAB
     Route: 042
  22. TAZOCILLINE [Concomitant]
     Active Substance: PIPERACILLIN SODIUM\TAZOBACTAM SODIUM
     Route: 065

REACTIONS (8)
  - Mucosal inflammation [Recovered/Resolved]
  - Neuralgia [Recovered/Resolved]
  - Erythema multiforme [Recovered/Resolved]
  - Rash vesicular [Recovering/Resolving]
  - Febrile bone marrow aplasia [Recovered/Resolved]
  - Febrile bone marrow aplasia [Recovered/Resolved]
  - Peripheral sensorimotor neuropathy [Recovered/Resolved]
  - Drug eruption [Recovered/Resolved]

NARRATIVE: CASE EVENT DATE: 20100831
